FAERS Safety Report 10163771 (Version 1)
Quarter: 2014Q2

REPORT INFORMATION
  Report Type: Spontaneous
  Country: GB (occurrence: GB)
  Receive Date: 20140509
  Receipt Date: 20140509
  Transmission Date: 20141212
  Serious: Yes (Other)
  Sender: FDA-Public Use
  Company Number: GB-B.I. PHARMACEUTICALS,INC./RIDGEFIELD-2014-BI-19546UK

PATIENT
  Age: 72 Year
  Sex: Male
  Weight: 43.2 kg

DRUGS (16)
  1. SPIRIVA RESPIMAT [Suspect]
     Indication: CHRONIC OBSTRUCTIVE PULMONARY DISEASE
     Dosage: DOSE PER APPLICATION: 2DF
     Route: 055
     Dates: end: 20140416
  2. ASPIRIN [Concomitant]
     Dosage: 75 MG
     Route: 065
  3. ATORVASTATIN [Concomitant]
     Dosage: 20 MG
     Route: 065
  4. CIMETIDINE [Concomitant]
     Dosage: 800 MG
     Route: 065
  5. ENOXAPARIN [Concomitant]
     Route: 058
  6. GTN [Concomitant]
     Dosage: DOSE PER APPLICATION: 2DF
     Route: 065
  7. LOPRAZOLAM [Concomitant]
     Route: 065
  8. MEBEVERINE [Concomitant]
     Dosage: 405 MG
     Route: 065
  9. MOVICOL [Concomitant]
     Dosage: DOSE PER APPLICATION: 2DF
     Route: 065
  10. OMEPRAZOLE [Concomitant]
     Dosage: 40 MG
     Route: 065
  11. RAMIPRIL [Concomitant]
     Dosage: 10 MG
     Route: 065
  12. SALBUTAMOL [Concomitant]
     Dosage: DOSE PER APPLICATION: 2DF
     Route: 055
  13. SERETIDE [Concomitant]
     Dosage: DOSE PER APPLICATION: 1DF
     Route: 055
  14. TILDIEM RETARD [Concomitant]
     Route: 065
  15. ZOLPIDEM [Concomitant]
     Dosage: 5 MG
     Route: 065
  16. CLOPRIDOGREL [Concomitant]
     Dosage: 75 MG
     Route: 065

REACTIONS (3)
  - Acute coronary syndrome [Recovered/Resolved]
  - Acute myocardial infarction [Unknown]
  - Chest pain [Recovered/Resolved]
